FAERS Safety Report 5320920-3 (Version None)
Quarter: 2007Q2

REPORT INFORMATION
  Report Type: 
  Country: None (occurrence: None)
  Receive Date: 20070504
  Receipt Date: 20070416
  Transmission Date: 20071010
  Serious: Yes (Hospitalization, Other)
  Sender: FDA-Public Use
  Company Number: 6032402

PATIENT
  Age: 34 Year
  Sex: Female

DRUGS (1)
  1. ZOLPIDEM TARTRATE [Suspect]
     Indication: SLEEP DISORDER
     Dosage: SEE IMAGE

REACTIONS (12)
  - ANXIETY [None]
  - CONVULSION [None]
  - DRUG ABUSER [None]
  - DRUG TOLERANCE [None]
  - DRUG WITHDRAWAL SYNDROME [None]
  - DYSTHYMIC DISORDER [None]
  - GRAND MAL CONVULSION [None]
  - HYPERHIDROSIS [None]
  - MEMORY IMPAIRMENT [None]
  - PALPITATIONS [None]
  - TREATMENT NONCOMPLIANCE [None]
  - TREMOR [None]
